FAERS Safety Report 19498978 (Version 1)
Quarter: 2021Q3

REPORT INFORMATION
  Report Type: Spontaneous
  Country: US (occurrence: US)
  Receive Date: 20210707
  Receipt Date: 20210707
  Transmission Date: 20211014
  Serious: Yes (Hospitalization, Other)
  Sender: FDA-Public Use
  Company Number: US-GLAND PHARMA LIMITED-2021US004668

PATIENT
  Age: 61 Year
  Sex: Male
  Weight: 94.7 kg

DRUGS (10)
  1. GANCICLOVIR. [Suspect]
     Active Substance: GANCICLOVIR
     Indication: MENINGITIS
     Dosage: UNK
     Route: 065
  2. ACYCLOVIR. [Suspect]
     Active Substance: ACYCLOVIR
     Indication: MENINGITIS
     Dosage: UNK
     Route: 065
  3. TIGECYCLINE. [Suspect]
     Active Substance: TIGECYCLINE
     Dosage: 50 MG, BID
     Route: 042
  4. MEROPENEM. [Suspect]
     Active Substance: MEROPENEM
     Indication: MENINGITIS
     Dosage: 2 G, Q8HR
     Route: 042
  5. DAPTOMYCIN. [Suspect]
     Active Substance: DAPTOMYCIN
     Indication: MENINGITIS
     Dosage: 1100 MG, DAILY (12 MG/KG EVERY 24 H)
     Route: 042
  6. IVERMECTIN. [Suspect]
     Active Substance: IVERMECTIN
     Indication: MENINGITIS
     Dosage: 18 MG, DAILY (200 MCG/KG)
     Route: 048
  7. TIGECYCLINE. [Suspect]
     Active Substance: TIGECYCLINE
     Indication: MENINGITIS
     Dosage: 100 MG, SINGLE
     Route: 042
  8. VANCOMYCIN HYDROCHLORIDE. [Suspect]
     Active Substance: VANCOMYCIN HYDROCHLORIDE
     Indication: MENINGITIS
     Dosage: 1.5 G, BID (16 MG/KG)
     Route: 042
  9. IVERMECTIN. [Suspect]
     Active Substance: IVERMECTIN
     Dosage: UNK (ENEMA)
     Route: 065
  10. LINEZOLID. [Suspect]
     Active Substance: LINEZOLID
     Indication: MENINGITIS
     Dosage: 600 MG, DAILY
     Route: 042

REACTIONS (4)
  - Ileus [Unknown]
  - Drug ineffective [Unknown]
  - Disseminated strongyloidiasis [Unknown]
  - Respiratory disorder [Not Recovered/Not Resolved]
